FAERS Safety Report 4525312-2 (Version None)
Quarter: 2004Q4

REPORT INFORMATION
  Report Type: 
  Country: None (occurrence: None)
  Receive Date: 20041117
  Receipt Date: 20040412
  Transmission Date: 20050328
  Serious: Yes (Other)
  Sender: FDA-Public Use
  Company Number: 2004S1001060

PATIENT
  Age: 12 Year
  Sex: Male

DRUGS (14)
  1. CLOZAPINE [Suspect]
     Indication: BIPOLAR DISORDER
     Dosage: 400MG Q HS, TITRATED TO 500MG ORAL
     Route: 048
     Dates: start: 20040127, end: 20040406
  2. CLOZAPINE [Suspect]
     Indication: HALLUCINATIONS, MIXED
     Dosage: 400MG Q HS, TITRATED TO 500MG ORAL
     Route: 048
     Dates: start: 20040127, end: 20040406
  3. CLOZAPINE [Suspect]
     Indication: SCHIZOPHRENIA
     Dosage: 400MG Q HS, TITRATED TO 500MG ORAL
     Route: 048
     Dates: start: 20040127, end: 20040406
  4. CLOZAPINE [Suspect]
     Indication: THINKING ABNORMAL
     Dosage: 400MG Q HS, TITRATED TO 500MG ORAL
     Route: 048
     Dates: start: 20040127, end: 20040406
  5. CLOZAPINE [Suspect]
     Indication: BIPOLAR DISORDER
     Dosage: 400MG Q HS, TITRATED TO 500MG ORAL
     Route: 048
     Dates: start: 20040407
  6. CLOZAPINE [Suspect]
     Indication: HALLUCINATIONS, MIXED
     Dosage: 400MG Q HS, TITRATED TO 500MG ORAL
     Route: 048
     Dates: start: 20040407
  7. CLOZAPINE [Suspect]
     Indication: SCHIZOPHRENIA
     Dosage: 400MG Q HS, TITRATED TO 500MG ORAL
     Route: 048
     Dates: start: 20040407
  8. CLOZAPINE [Suspect]
     Indication: THINKING ABNORMAL
     Dosage: 400MG Q HS, TITRATED TO 500MG ORAL
     Route: 048
     Dates: start: 20040407
  9. RISPERIDONE [Concomitant]
  10. MIXED AMPHETAMINE SALTS XR [Concomitant]
  11. NORTRIPTYLINE HCL [Concomitant]
  12. DIVALOPREX SODIUM [Concomitant]
  13. LANSOPRAZOLE [Concomitant]
  14. DESMOPRESSIN [Concomitant]

REACTIONS (1)
  - NEUTROPENIA [None]
